FAERS Safety Report 16580333 (Version 1)
Quarter: 2019Q3

REPORT INFORMATION
  Report Type: Spontaneous
  Country: FR (occurrence: FR)
  Receive Date: 20190716
  Receipt Date: 20190716
  Transmission Date: 20191004
  Serious: Yes (Hospitalization)
  Sender: FDA-Public Use
  Company Number: FR-BRISTOL-MYERS SQUIBB COMPANY-BMS-2019-068783

PATIENT
  Age: 80 Year
  Sex: Male
  Weight: 98 kg

DRUGS (3)
  1. COLCHICINE. [Suspect]
     Active Substance: COLCHICINE
     Indication: HYPERURICAEMIA
     Dosage: 1 MILLIGRAM, QD
     Route: 048
     Dates: start: 20190503, end: 20190607
  2. ELIQUIS [Suspect]
     Active Substance: APIXABAN
     Indication: PRODUCT USED FOR UNKNOWN INDICATION
     Dosage: 2 DOSAGE FORM, QD
     Route: 048
     Dates: start: 20190531, end: 20190609
  3. OFLOXACINE [Concomitant]
     Active Substance: OFLOXACIN
     Indication: OSTEITIS
     Dosage: 3 DOSAGE FORM, QD
     Route: 048
     Dates: start: 20190521

REACTIONS (4)
  - Hot flush [Recovering/Resolving]
  - Erythrosis [Recovering/Resolving]
  - Rash maculo-papular [Recovering/Resolving]
  - Eye pruritus [Recovering/Resolving]

NARRATIVE: CASE EVENT DATE: 20190605
